FAERS Safety Report 6243509-0 (Version None)
Quarter: 2009Q2

REPORT INFORMATION
  Report Type: 
  Country: None (occurrence: None)
  Receive Date: 20090618
  Receipt Date: 20081031
  Transmission Date: 20091009
  Serious: Yes (Other)
  Sender: FDA-Public Use
  Company Number: CIP08002323

PATIENT
  Age: 62 Year
  Sex: Female
  Weight: 68 kg

DRUGS (16)
  1. ACTONEL [Suspect]
     Dosage: 35 MG ONCE WEEKLY, ORAL
     Route: 048
     Dates: start: 20040720
  2. FOSAMAX [Suspect]
     Dosage: 70 MG ONCE WEEKLY
     Dates: end: 20051101
  3. ASPIRIN [Concomitant]
  4. PREMARIN [Concomitant]
  5. SYNTHROID [Concomitant]
  6. PLAVIX [Concomitant]
  7. ZETIA [Concomitant]
  8. PROZAC [Concomitant]
  9. LIPITOR [Concomitant]
  10. TOPROL-XL [Concomitant]
  11. MELATONIN (MELATONIN) [Concomitant]
  12. DIPHENHYDRAMINE HCL [Concomitant]
  13. VITAMIN C/00008001/ (ASCORBIC ACID) [Concomitant]
  14. VITAMIN E /00110501/ (TOCOPHEROL) [Concomitant]
  15. MULTIVITAM /00831701/ (VITAMINS NOS) [Concomitant]
  16. ACETAMINOPHEN [Concomitant]

REACTIONS (13)
  - DENTAL CARIES [None]
  - GINGIVAL RECESSION [None]
  - JAW DISORDER [None]
  - MALOCCLUSION [None]
  - MASTICATION DISORDER [None]
  - MOUTH ULCERATION [None]
  - ORAL TORUS [None]
  - OSTEONECROSIS [None]
  - PAIN IN JAW [None]
  - PRIMARY SEQUESTRUM [None]
  - RESORPTION BONE INCREASED [None]
  - TOOTH FRACTURE [None]
  - TOOTHACHE [None]
